FAERS Safety Report 6175109-5 (Version None)
Quarter: 2009Q2

REPORT INFORMATION
  Report Type: 
  Country: None (occurrence: None)
  Receive Date: 20090430
  Receipt Date: 20081219
  Transmission Date: 20091009
  Serious: No
  Sender: FDA-Public Use
  Company Number: US-ASTRAZENECA-2008UW28419

PATIENT
  Sex: Female

DRUGS (4)
  1. NEXIUM [Suspect]
     Dosage: 40 MG
     Route: 048
  2. CRESTOR [Concomitant]
     Dosage: 10 MG
     Route: 048
  3. PLAVIX [Concomitant]
     Dosage: 75 MG
  4. ALLEGRA D 24 HOUR [Concomitant]

REACTIONS (1)
  - CYSTITIS [None]
